FAERS Safety Report 23231915 (Version 1)
Quarter: 2023Q4

REPORT INFORMATION
  Report Type: Spontaneous
  Country: US (occurrence: None)
  Receive Date: 20231126
  Receipt Date: 20231126
  Transmission Date: 20240110
  Serious: Yes (Other)
  Sender: FDA-Public Use
  Company Number: None

PATIENT
  Age: 51 Year
  Sex: Female
  Weight: 83.25 kg

DRUGS (15)
  1. COSENTYX [Suspect]
     Active Substance: SECUKINUMAB
     Indication: Psoriasis
     Dates: end: 20231115
  2. TOPIRAMATE [Concomitant]
     Active Substance: TOPIRAMATE
  3. NURTEC ODT [Concomitant]
     Active Substance: RIMEGEPANT SULFATE
  4. OMEPRAZOLE [Concomitant]
     Active Substance: OMEPRAZOLE
  5. VITAMIN D2 [Concomitant]
     Active Substance: ERGOCALCIFEROL
  6. LISINOPRIL [Concomitant]
  7. ONDANSETRON [Concomitant]
  8. LEVOCETIRIZINE [Concomitant]
  9. ALPRAZOLAM [Concomitant]
  10. Neti Flo Nasal Wash [Concomitant]
  11. 50+women^s daily vitamin [Concomitant]
  12. Vitamin E [Concomitant]
  13. VITAMIN D [Concomitant]
     Active Substance: VITAMIN D NOS
  14. VITAMIN C [Concomitant]
     Active Substance: ASCORBIC ACID
  15. Calcium - Daily Iron [Concomitant]

REACTIONS (13)
  - Palmar-plantar erythrodysaesthesia syndrome [None]
  - Hypersomnia [None]
  - Fatigue [None]
  - Somnolence [None]
  - Sluggishness [None]
  - Anhedonia [None]
  - Apathy [None]
  - Personality change [None]
  - Social avoidant behaviour [None]
  - Decreased interest [None]
  - Decreased appetite [None]
  - Weight decreased [None]
  - Vitamin D decreased [None]

NARRATIVE: CASE EVENT DATE: 20231122
